FAERS Safety Report 13175194 (Version 2)
Quarter: 2017Q1

REPORT INFORMATION
  Report Type: Spontaneous
  Country: US (occurrence: US)
  Receive Date: 20170201
  Receipt Date: 20170210
  Transmission Date: 20170428
  Serious: No
  Sender: FDA-Public Use
  Company Number: US-HORIZON-RAV-0028-2017

PATIENT
  Age: 42 Year
  Sex: Female

DRUGS (7)
  1. RAVICTI [Suspect]
     Active Substance: GLYCEROL PHENYLBUTYRATE
     Indication: ORNITHINE TRANSCARBAMOYLASE DEFICIENCY
     Dates: start: 20161020
  2. GEODON [Concomitant]
     Active Substance: ZIPRASIDONE HYDROCHLORIDE\ZIPRASIDONE MESYLATE
  3. CITRULLINE [Concomitant]
     Active Substance: CITRULLINE
  4. LACTULOSE. [Concomitant]
     Active Substance: LACTULOSE
  5. DIAZEPAM. [Concomitant]
     Active Substance: DIAZEPAM
  6. EFFEXOR [Concomitant]
     Active Substance: VENLAFAXINE HYDROCHLORIDE
  7. LINZESS [Concomitant]
     Active Substance: LINACLOTIDE

REACTIONS (5)
  - Abdominal discomfort [Unknown]
  - Feeling of body temperature change [Unknown]
  - Fatigue [Unknown]
  - Chest pain [Unknown]
  - Costochondritis [Unknown]
